FAERS Safety Report 5726160-8 (Version None)
Quarter: 2008Q2

REPORT INFORMATION
  Report Type: 
  Country: None (occurrence: None)
  Receive Date: 20080502
  Receipt Date: 20080425
  Transmission Date: 20081010
  Serious: Yes (Hospitalization)
  Sender: FDA-Public Use
  Company Number: US-BAYER-200821119NA

PATIENT
  Sex: Male

DRUGS (3)
  1. LEVITRA [Suspect]
     Indication: DRUG USE FOR UNKNOWN INDICATION
     Route: 048
     Dates: start: 20080301
  2. LOSARTAN POTASSIUM [Concomitant]
     Dosage: TOTAL DAILY DOSE: 25 MG
  3. LOVASTATIN [Concomitant]
     Dosage: TOTAL DAILY DOSE: 5 MG

REACTIONS (2)
  - ABDOMINAL PAIN [None]
  - DYSPEPSIA [None]
